FAERS Safety Report 12319718 (Version 1)
Quarter: 2016Q2

REPORT INFORMATION
  Report Type: Spontaneous
  Country: US (occurrence: US)
  Receive Date: 20160429
  Receipt Date: 20160429
  Transmission Date: 20160815
  Serious: No
  Sender: FDA-Public Use
  Company Number: US-ROCHE-1632496

PATIENT
  Sex: Male

DRUGS (1)
  1. ESBRIET [Suspect]
     Active Substance: PIRFENIDONE
     Indication: IDIOPATHIC PULMONARY FIBROSIS
     Route: 048
     Dates: start: 20150517

REACTIONS (5)
  - Rash macular [Unknown]
  - Throat irritation [Unknown]
  - Photosensitivity reaction [Unknown]
  - Gastrooesophageal reflux disease [Unknown]
  - Erythema [Unknown]
